FAERS Safety Report 5345433-4 (Version None)
Quarter: 2007Q2

REPORT INFORMATION
  Report Type: 
  Country: None (occurrence: None)
  Receive Date: 20070531
  Receipt Date: 20070515
  Transmission Date: 20071010
  Serious: Yes (Death, Life-Threatening, Hospitalization, Other)
  Sender: FDA-Public Use
  Company Number: 2005EU000629

PATIENT
  Age: 67 Year
  Sex: Male

DRUGS (7)
  1. FK506(TACROLIMUS CAPSULES) FK506(TACROLIMUS) CAPSULE [Suspect]
     Indication: RENAL TRANSPLANT
     Dosage: 1.00 MG, BID, ORAL
     Route: 048
     Dates: start: 20031009, end: 20050119
  2. MYCOPHENOLATE MOFETIL [Suspect]
     Dosage: 500 MG, ORAL
     Route: 048
     Dates: start: 20031008, end: 20041207
  3. PREDNISONE TAB [Suspect]
     Indication: RENAL TRANSPLANT
     Dosage: 5.00 MG, UID/QD, ORAL
     Route: 048
     Dates: start: 20031010, end: 20050526
  4. SIROLIMUS(SIROLIMUS) [Suspect]
     Dosage: 3.00 MG
     Dates: start: 20050120, end: 20050215
  5. INSULIN (INSULIN) [Concomitant]
  6. ZOCOR [Concomitant]
  7. METOPROLOL TARTRATE [Concomitant]

REACTIONS (11)
  - ABDOMINAL PAIN [None]
  - BK VIRUS INFECTION [None]
  - CARDIAC ARREST [None]
  - CARDIOMEGALY [None]
  - CHOLECYSTITIS ACUTE [None]
  - HAEMATURIA [None]
  - HAEMODIALYSIS [None]
  - HYPERTENSIVE EMERGENCY [None]
  - KIDNEY TRANSPLANT REJECTION [None]
  - PNEUMONIA [None]
  - POST PROCEDURAL COMPLICATION [None]
